FAERS Safety Report 7585282-X (Version None)
Quarter: 2011Q2

REPORT INFORMATION
  Report Type: 
  Country: None (occurrence: None)
  Receive Date: 20110531
  Receipt Date: 20101001
  Transmission Date: 20111010
  Serious: Yes (Hospitalization)
  Sender: FDA-Public Use
  Company Number: WAES 1010USA00150

PATIENT
  Age: 54 Year
  Sex: Female
  Weight: 95.709 kg

DRUGS (6)
  1. HYDROCHLOROTHIAZIDE [Concomitant]
  2. SIMVASTATIN [Concomitant]
  3. LOTENSIN [Concomitant]
  4. SYMBICORT [Concomitant]
  5. ACTOS [Concomitant]
  6. JANUMET [Suspect]
     Indication: TYPE 2 DIABETES MELLITUS
     Dosage: /PO
     Route: 048
     Dates: start: 20090908

REACTIONS (1)
  - PANCREATITIS [None]
